FAERS Safety Report 8107571-2 (Version None)
Quarter: 2012Q1

REPORT INFORMATION
  Report Type: 
  Country: None (occurrence: None)
  Receive Date: 20120202
  Receipt Date: 20120124
  Transmission Date: 20120608
  Serious: Yes (Other)
  Sender: FDA-Public Use
  Company Number: GB-GENZYME-MOZO-1000637

PATIENT

DRUGS (2)
  1. MOZOBIL [Suspect]
     Indication: MULTIPLE MYELOMA
  2. MOZOBIL [Suspect]
     Indication: HAEMATOPOIETIC STEM CELL MOBILISATION
     Dosage: UNK
     Route: 065

REACTIONS (2)
  - THERAPEUTIC RESPONSE DECREASED [None]
  - SEPSIS [None]
